FAERS Safety Report 14560747 (Version 2)
Quarter: 2018Q1

REPORT INFORMATION
  Report Type: Spontaneous
  Country: US (occurrence: US)
  Receive Date: 20180222
  Receipt Date: 20180320
  Transmission Date: 20180509
  Serious: No
  Sender: FDA-Public Use
  Company Number: US-009507513-1802USA010627

PATIENT
  Age: 25 Year
  Sex: Female
  Weight: 85.53 kg

DRUGS (1)
  1. NEXPLANON [Suspect]
     Active Substance: ETONOGESTREL
     Indication: CONTRACEPTION
     Dosage: ONE IMPLANT EVERY 3 YEARS
     Route: 059
     Dates: start: 20161006, end: 20180119

REACTIONS (6)
  - Vaginal haemorrhage [Unknown]
  - Device kink [Recovered/Resolved]
  - Emotional disorder [Unknown]
  - Medical device discomfort [Unknown]
  - Device breakage [Recovered/Resolved]
  - Limb discomfort [Unknown]

NARRATIVE: CASE EVENT DATE: 201711
